FAERS Safety Report 6022148-0 (Version None)
Quarter: 2008Q4

REPORT INFORMATION
  Report Type: 
  Country: None (occurrence: None)
  Receive Date: 20081229
  Receipt Date: 20081215
  Transmission Date: 20090506
  Serious: Yes (Hospitalization)
  Sender: FDA-Public Use
  Company Number: JP-ABBOTT-08P-087-0449401-00

PATIENT
  Age: 79 Year
  Sex: Male
  Weight: 81 kg

DRUGS (10)
  1. LEUPROLIDE ACETATE [Suspect]
     Indication: PROSTATE CANCER STAGE II
     Route: 058
     Dates: start: 20060822
  2. LEUPROLIDE ACETATE [Suspect]
     Dates: start: 20050412, end: 20060718
  3. TAMSULOSIN HCL [Concomitant]
     Indication: BENIGN PROSTATIC HYPERPLASIA
     Route: 048
     Dates: end: 20080115
  4. FLIVAS [Concomitant]
     Indication: BENIGN PROSTATIC HYPERPLASIA
     Route: 048
     Dates: end: 20080115
  5. FLIVAS [Concomitant]
     Route: 048
     Dates: start: 20080116
  6. BUP-4 [Concomitant]
     Indication: HYPERTONIC BLADDER
     Route: 048
  7. AMOBAN [Concomitant]
     Indication: INSOMNIA
     Route: 048
  8. PL GRAN. [Concomitant]
     Indication: NASOPHARYNGITIS
     Route: 048
     Dates: start: 20061114, end: 20061118
  9. MAGMITT [Concomitant]
     Indication: CONSTIPATION
     Route: 048
     Dates: start: 20070213
  10. CASODEX [Concomitant]
     Indication: PROSTATE CANCER STAGE II
     Route: 048
     Dates: start: 20080115

REACTIONS (1)
  - GASTROENTERITIS [None]
